FAERS Safety Report 13177944 (Version 2)
Quarter: 2017Q2

REPORT INFORMATION
  Report Type: Report from Study
  Country: DE (occurrence: DE)
  Receive Date: 20170202
  Receipt Date: 20170623
  Transmission Date: 20170830
  Serious: Yes (Hospitalization)
  Sender: FDA-Public Use
  Company Number: DE-AMGEN-DEUNI2017015930

PATIENT
  Age: 66 Year
  Sex: Male

DRUGS (9)
  1. ETANERCEPT [Suspect]
     Active Substance: ETANERCEPT
     Indication: RHEUMATOID ARTHRITIS
     Dosage: 50 MG, WEEKLY
     Route: 065
  2. PANTOPRAZOL [Concomitant]
     Active Substance: PANTOPRAZOLE SODIUM
  3. VIGANTOLETTEN [Concomitant]
     Active Substance: CHOLECALCIFEROL
  4. PREDNISOLON [Concomitant]
     Active Substance: PREDNISOLONE
  5. SALBUTAMOL [Concomitant]
     Active Substance: ALBUTEROL
  6. ACETOLYT [Concomitant]
  7. METOPROLOL. [Concomitant]
     Active Substance: METOPROLOL
  8. FENOTEROL [Concomitant]
     Active Substance: FENOTEROL
  9. ASPIRIN. [Concomitant]
     Active Substance: ASPIRIN

REACTIONS (2)
  - Chronic obstructive pulmonary disease [Unknown]
  - Metabolic acidosis [Recovered/Resolved]

NARRATIVE: CASE EVENT DATE: 20161207
